FAERS Safety Report 22191866 (Version 1)
Quarter: 2023Q2

REPORT INFORMATION
  Report Type: Spontaneous
  Country: ES (occurrence: ES)
  Receive Date: 20230410
  Receipt Date: 20230410
  Transmission Date: 20230721
  Serious: Yes (Other)
  Sender: FDA-Public Use
  Company Number: None

PATIENT
  Age: 36 Year
  Sex: Male

DRUGS (2)
  1. AZTREONAM [Interacting]
     Active Substance: AZTREONAM
     Indication: Pneumonia
     Route: 042
     Dates: start: 20230209, end: 20230210
  2. CLINDAMYCIN PHOSPHATE [Interacting]
     Active Substance: CLINDAMYCIN PHOSPHATE
     Indication: Pneumonia
     Route: 042
     Dates: start: 20230209, end: 20230210

REACTIONS (3)
  - Erythema [Recovered/Resolved]
  - Oedema peripheral [Recovered/Resolved]
  - Drug interaction [Unknown]

NARRATIVE: CASE EVENT DATE: 20230210
